FAERS Safety Report 4757273-5 (Version None)
Quarter: 2005Q3

REPORT INFORMATION
  Report Type: 
  Country: None (occurrence: None)
  Receive Date: 20050829
  Receipt Date: 20050816
  Transmission Date: 20060218
  Serious: Yes (Hospitalization)
  Sender: FDA-Public Use
  Company Number: 2005116057

PATIENT
  Sex: Female

DRUGS (2)
  1. CLINDAMYCIN HYDROCHLORIDE [Suspect]
     Indication: CAESAREAN SECTION
     Dosage: 900 MG (300 MG, 3 IN 1 D), INTRAVENOUS
     Route: 042
  2. CLINDAMYCIN HYDROCHLORIDE [Suspect]
     Dosage: 900 MG (300 MG, 3 IN 1 D), ORAL
     Route: 048

REACTIONS (4)
  - NOSOCOMIAL INFECTION [None]
  - POSTOPERATIVE WOUND COMPLICATION [None]
  - PURULENT DISCHARGE [None]
  - WOUND DEHISCENCE [None]
